FAERS Safety Report 13849375 (Version 1)
Quarter: 2017Q3

REPORT INFORMATION
  Report Type: Spontaneous
  Country: GB (occurrence: GB)
  Receive Date: 20170809
  Receipt Date: 20170809
  Transmission Date: 20171127
  Serious: Yes (Hospitalization, Other)
  Sender: FDA-Public Use
  Company Number: GB-SUN PHARMACEUTICAL INDUSTRIES LTD-2017RR-146869

PATIENT
  Age: 50 Year
  Sex: Male
  Weight: 62.59 kg

DRUGS (4)
  1. CITALOPRAM [Suspect]
     Active Substance: CITALOPRAM HYDROBROMIDE
     Indication: DEPRESSION
     Dosage: 30 MG
     Route: 048
     Dates: start: 20170704
  2. CANNABIS SATIVA [Concomitant]
     Active Substance: CANNABIS SATIVA SUBSP. SATIVA FLOWERING TOP
     Indication: PRODUCT USED FOR UNKNOWN INDICATION
     Dosage: DECREASING DAILY USE STEADILY OVER THE PAST 2 MONTHS.
     Route: 065
  3. PARACETAMOL [Concomitant]
     Active Substance: ACETAMINOPHEN
     Indication: PRODUCT USED FOR UNKNOWN INDICATION
     Dosage: UNK
     Route: 065
  4. IBUPROFEN. [Concomitant]
     Active Substance: IBUPROFEN
     Indication: PRODUCT USED FOR UNKNOWN INDICATION
     Dosage: UNK
     Route: 065

REACTIONS (13)
  - Dizziness [Recovering/Resolving]
  - Depression [Recovering/Resolving]
  - Anxiety [Recovering/Resolving]
  - Suicidal ideation [Recovering/Resolving]
  - Dyspnoea [Recovering/Resolving]
  - Mood swings [Recovering/Resolving]
  - Hyperhidrosis [Recovering/Resolving]
  - Mania [Recovering/Resolving]
  - Memory impairment [Recovering/Resolving]
  - Fear [Recovering/Resolving]
  - Hot flush [Recovering/Resolving]
  - Hallucination [Recovering/Resolving]
  - Tachyphrenia [Recovering/Resolving]

NARRATIVE: CASE EVENT DATE: 201707
